FAERS Safety Report 25850752 (Version 2)
Quarter: 2025Q4

REPORT INFORMATION
  Report Type: Spontaneous
  Country: CN (occurrence: CN)
  Receive Date: 20250926
  Receipt Date: 20251105
  Transmission Date: 20260117
  Serious: Yes (Other)
  Sender: ALEXION PHARMACEUTICALS
  Company Number: CN-ASTRAZENECA-202509CHN013290CN

PATIENT
  Age: 65 Year
  Sex: Female

DRUGS (1)
  1. SYMBICORT [Suspect]
     Active Substance: BUDESONIDE\FORMOTEROL FUMARATE DIHYDRATE
     Indication: Asthma
     Dosage: UNK
     Route: 065

REACTIONS (7)
  - Choking [Unknown]
  - Cough [Unknown]
  - Throat irritation [Unknown]
  - Drug ineffective [Unknown]
  - Product taste abnormal [Unknown]
  - Taste disorder [Unknown]
  - Suspected counterfeit product [Unknown]
